FAERS Safety Report 18653922 (Version 1)
Quarter: 2020Q4

REPORT INFORMATION
  Report Type: Other
  Country: IN (occurrence: IN)
  Receive Date: 20201223
  Receipt Date: 20201223
  Transmission Date: 20210114
  Serious: Yes (Other)
  Sender: FDA-Public Use
  Company Number: IN-ROCHE-2735105

PATIENT
  Age: 73 Year
  Sex: Male

DRUGS (1)
  1. ACTILYSE [Suspect]
     Active Substance: ALTEPLASE
     Indication: CEREBROVASCULAR ACCIDENT
     Route: 042

REACTIONS (4)
  - Cerebral artery embolism [Unknown]
  - Haemorrhagic transformation stroke [Unknown]
  - Coma scale abnormal [Unknown]
  - Monoplegia [Unknown]
